FAERS Safety Report 15911851 (Version 1)
Quarter: 2019Q1

REPORT INFORMATION
  Report Type: Spontaneous
  Country: CN (occurrence: CN)
  Receive Date: 20190204
  Receipt Date: 20190204
  Transmission Date: 20190417
  Serious: Yes (Other)
  Sender: FDA-Public Use
  Company Number: PHHY2019CN023424

PATIENT
  Age: 79 Year
  Sex: Female
  Weight: 45 kg

DRUGS (4)
  1. CREATINE PHOSPHATE SODIUM [Concomitant]
     Active Substance: CREATINE
     Indication: ISCHAEMIC HEART DISEASE PROPHYLAXIS
     Dosage: 1 G, QD
     Route: 041
     Dates: start: 20181130, end: 20181209
  2. LESCOL [Suspect]
     Active Substance: FLUVASTATIN SODIUM
     Indication: CORONARY ARTERY DISEASE
     Dosage: 40 MG, QD
     Route: 048
     Dates: start: 20181130, end: 20181201
  3. LESCOL [Suspect]
     Active Substance: FLUVASTATIN SODIUM
     Indication: MYOCARDIAL INFARCTION
  4. MEROPENEM. [Concomitant]
     Active Substance: MEROPENEM
     Indication: INFECTION
     Dosage: 0.5 G, BID
     Route: 041
     Dates: start: 20181130, end: 20181203

REACTIONS (2)
  - Myocardial necrosis marker increased [Recovered/Resolved]
  - Liver function test abnormal [Recovered/Resolved]

NARRATIVE: CASE EVENT DATE: 20181201
